FAERS Safety Report 9851403 (Version 2)
Quarter: 2014Q1

REPORT INFORMATION
  Report Type: Report from Study
  Country: US (occurrence: US)
  Receive Date: 20140129
  Receipt Date: 20140205
  Transmission Date: 20141002
  Serious: Yes (Hospitalization)
  Sender: FDA-Public Use
  Company Number: US-MERCK-1401USA011546

PATIENT
  Age: 78 Year
  Sex: Male
  Weight: 77.7 kg

DRUGS (6)
  1. ZOLINZA [Suspect]
     Indication: T-CELL LYMPHOMA
     Dosage: 400 MG, QD
     Route: 048
     Dates: start: 20130719, end: 20140103
  2. ASPIRIN [Concomitant]
     Dosage: UNK
     Dates: start: 20130206
  3. CHOLECALCIFEROL [Concomitant]
     Dosage: UNK
     Dates: start: 20130227
  4. LIPITOR [Concomitant]
     Indication: CEREBROVASCULAR ACCIDENT
     Dosage: UNK
     Dates: start: 20110228
  5. PROSCAR [Concomitant]
     Dosage: UNK
     Route: 048
     Dates: start: 20121008
  6. TRIAMCINOLONE [Concomitant]
     Indication: PRURITUS
     Dosage: UNK
     Dates: start: 20130618

REACTIONS (1)
  - Staphylococcal bacteraemia [Recovered/Resolved]
